FAERS Safety Report 4461055-1 (Version None)
Quarter: 2004Q3

REPORT INFORMATION
  Report Type: 
  Country: None (occurrence: None)
  Receive Date: 20040928
  Receipt Date: 20040831
  Transmission Date: 20050211
  Serious: Yes (Other)
  Sender: FDA-Public Use
  Company Number: US-BRISTOL-MYERS SQUIBB COMPANY-12709333

PATIENT
  Age: 36 Year
  Sex: Female

DRUGS (7)
  1. ABILIFY [Suspect]
     Dosage: DATE OF INITIATION NOT REPORTED.  INCREASED TO 20 MG ON 10-DEC-2003.
     Route: 048
     Dates: end: 20031229
  2. AMBIEN [Suspect]
     Route: 048
  3. ATIVAN [Suspect]
     Dosage: TITRATED UP TO 1 MG QID
     Route: 048
     Dates: start: 20031229
  4. EFFEXOR XR [Suspect]
     Route: 048
  5. GABITRIL [Suspect]
     Dosage: 4 MG IN THE MORNING AND 8 MG AT HS.
     Route: 048
     Dates: end: 20031229
  6. KLONOPIN [Suspect]
     Route: 048
     Dates: end: 20031229
  7. REMERON [Suspect]
     Dosage: INCREASED TO 60 MG DAILY ON 23-FEB-2004.
     Route: 048

REACTIONS (2)
  - PREGNANCY [None]
  - PREMATURE BABY [None]
